FAERS Safety Report 9388368 (Version 2)
Quarter: 2013Q3

REPORT INFORMATION
  Report Type: Spontaneous
  Country: TR (occurrence: TR)
  Receive Date: 20130708
  Receipt Date: 20130806
  Transmission Date: 20140515
  Serious: Yes (Other)
  Sender: FDA-Public Use
  Company Number: PHHY2013TR068628

PATIENT
  Age: 61 Year
  Sex: Female

DRUGS (3)
  1. ACETYLSALICYLIC ACID [Suspect]
     Indication: CEREBROVASCULAR DISORDER
     Dosage: 300 MG, ONCE/SINGLE
  2. ACETYLSALICYLIC ACID [Suspect]
     Dosage: 775 MG, ONCE/SINGLE
     Route: 048
  3. ACETYLSALICYLIC ACID [Suspect]
     Dosage: 300 MG, QD

REACTIONS (6)
  - Analgesic asthma syndrome [Recovered/Resolved]
  - Asthma [Recovered/Resolved]
  - Nasal polyps [Recovered/Resolved]
  - Dyspnoea [Recovered/Resolved]
  - Rhinitis [Recovered/Resolved]
  - Rhonchi [Recovered/Resolved]
